FAERS Safety Report 5679953-X (Version None)
Quarter: 2008Q1

REPORT INFORMATION
  Report Type: 
  Country: None (occurrence: None)
  Receive Date: 20080324
  Receipt Date: 20080312
  Transmission Date: 20080703
  Serious: Yes (Life-Threatening)
  Sender: FDA-Public Use
  Company Number: GXKR2008DE02716

PATIENT
  Age: 69 Year
  Sex: Female

DRUGS (1)
  1. ACETYLSALICYLIC ACID (NGX)(ACETYLSALICYLIC ACID) UNKNOWN [Suspect]
     Indication: THROMBOSIS PROPHYLAXIS

REACTIONS (6)
  - BRAIN OEDEMA [None]
  - CEREBELLAR HAEMORRHAGE [None]
  - COMA [None]
  - ENDOTRACHEAL INTUBATION [None]
  - GENERAL PHYSICAL HEALTH DETERIORATION [None]
  - HAEMATOMA EVACUATION [None]
